FAERS Safety Report 9296309 (Version 1)
Quarter: 2013Q2

REPORT INFORMATION
  Report Type: Spontaneous
  Country: GB (occurrence: GB)
  Receive Date: 20130517
  Receipt Date: 20130517
  Transmission Date: 20140414
  Serious: Yes (Hospitalization)
  Sender: FDA-Public Use
  Company Number: PHHY2013GB048295

PATIENT
  Age: 68 Year
  Sex: Male

DRUGS (6)
  1. AMIODARONE [Suspect]
     Dosage: 200 MG, UNK
  2. WARFARIN [Concomitant]
     Route: 065
  3. ZYLORIC [Concomitant]
  4. PANTOPRAZOLE [Concomitant]
  5. FUROSEMIDE [Concomitant]
  6. PERINDOPRIL [Concomitant]

REACTIONS (9)
  - Haemorrhage [Recovered/Resolved]
  - Haemorrhage subcutaneous [Recovered/Resolved]
  - Wound [Recovered/Resolved]
  - Miliaria [Recovered/Resolved]
  - Rash papular [Recovered/Resolved]
  - Rash generalised [Recovered/Resolved]
  - Platelet count decreased [Recovered/Resolved]
  - Thrombocytopenia [Recovered/Resolved]
  - Rash [Recovered/Resolved]
